FAERS Safety Report 5519437-2 (Version None)
Quarter: 2007Q4

REPORT INFORMATION
  Report Type: 
  Country: None (occurrence: None)
  Receive Date: 20071114
  Receipt Date: 20071030
  Transmission Date: 20080405
  Serious: Yes (Other)
  Sender: FDA-Public Use
  Company Number: DSJ-2007-06912

PATIENT
  Age: 60 Year
  Sex: Male

DRUGS (9)
  1. OLMESARTAN MEDOXOMIL [Suspect]
     Indication: HYPERTENSION
     Dosage: 20 MG (20 MG, 1IN 1 D), PER ORAL
     Route: 048
     Dates: start: 20070817, end: 20070910
  2. ACTOS [Suspect]
     Indication: DIABETES MELLITUS
     Dosage: 30 MG (30 MG, 1 IN 1 D), PER ORAL
     Route: 048
     Dates: start: 20070723, end: 20070820
  3. KINEX(EPALRESTAT) (TABLET) (EPALRESTAT) [Suspect]
     Indication: DIABETES MELLITUS
     Dosage: 150 MG (50 MG,3 IN 1 D), PER ORAL
     Route: 048
     Dates: start: 20070723, end: 20070910
  4. AMARYL [Suspect]
     Indication: DIABETES MELLITUS
     Dosage: 2 MG (1 MG, 2 IN 1 D), PER ORAL
     Route: 048
     Dates: start: 20070817, end: 20070910
  5. BASTAMION(VOGLIBOSE) (TABLET) (VOGLIBOSE) [Suspect]
     Indication: DIABETES MELLITUS
     Dosage: 0.6 MG (0.2 MG, 3 IN 1 D), PER ORAL
     Route: 048
     Dates: start: 20070817, end: 20070910
  6. GOSHAJINKIGAN(HERBAL EXTRACT NOS) (HERBAL EXTRACT NOS) [Suspect]
     Indication: HYPERTENSION
     Dosage: 1 GM (1 GM, 1 IN 1 D), PER ORAL
     Route: 048
     Dates: start: 20070817, end: 20070910
  7. TENORMIN [Concomitant]
  8. DAONIL(GLIBENCLAMIDE) [Concomitant]
  9. ADALAT [Concomitant]

REACTIONS (9)
  - ALANINE AMINOTRANSFERASE INCREASED [None]
  - ANXIETY [None]
  - ASPARTATE AMINOTRANSFERASE INCREASED [None]
  - BLOOD PRESSURE INADEQUATELY CONTROLLED [None]
  - CHROMATURIA [None]
  - DIABETES MELLITUS INADEQUATE CONTROL [None]
  - FEELING ABNORMAL [None]
  - HEPATIC FUNCTION ABNORMAL [None]
  - PARAESTHESIA [None]
